FAERS Safety Report 5613935-9 (Version None)
Quarter: 2008Q1

REPORT INFORMATION
  Report Type: 
  Country: None (occurrence: None)
  Receive Date: 20080130
  Receipt Date: 20080118
  Transmission Date: 20080703
  Serious: Yes (Other)
  Sender: FDA-Public Use
  Company Number: FABR-1000042

PATIENT
  Age: 65 Year
  Sex: Female
  Weight: 104 kg

DRUGS (24)
  1. FABRAZYME [Suspect]
     Indication: FABRY'S DISEASE
     Dosage: 105 MG, Q2W
     Dates: start: 20030101
  2. IBUPROFEN [Concomitant]
  3. SYNTHROID [Concomitant]
  4. ALTACE [Concomitant]
  5. ACETAMINOPHEN [Concomitant]
  6. FIBER SUPPLEMENTS (NOT OTHERWISE SPECIFIED) [Concomitant]
  7. KLONOPIN [Concomitant]
  8. MAGNESIUM OXIDE (MAGNESIUM OXIDE) [Concomitant]
  9. OVER THE COUNTER ESTROGEN SUPPLEMENT [Concomitant]
  10. LASIX [Concomitant]
  11. FUROSEMIDE [Concomitant]
  12. POTASSIUM (POTASSIUM) [Concomitant]
  13. CRESTOR [Concomitant]
  14. ASPIRIN [Concomitant]
  15. CALCIUM GLUCONATE [Concomitant]
  16. DIGOXIN [Concomitant]
  17. PREMARIN [Concomitant]
  18. K-DUR 10 [Concomitant]
  19. COLACE (DOCUSATE SODIUM) [Concomitant]
  20. FISH OIL (NOT OTHERWISE SPECIFIED) [Concomitant]
  21. VITAMIN D [Concomitant]
  22. BETAPACE [Concomitant]
  23. COUMADIN [Concomitant]
  24. COMBIVENT [Concomitant]

REACTIONS (3)
  - ATRIAL FIBRILLATION [None]
  - CHEST DISCOMFORT [None]
  - MALAISE [None]
